FAERS Safety Report 6268011-1 (Version None)
Quarter: 2009Q3

REPORT INFORMATION
  Report Type: 
  Country: None (occurrence: None)
  Receive Date: 20090706
  Receipt Date: 20090624
  Transmission Date: 20100115
  Serious: Yes (Other)
  Sender: FDA-Public Use
  Company Number: AEUSA200900017

PATIENT
  Sex: Male

DRUGS (9)
  1. GAMUNEX [Suspect]
     Indication: COMBINED IMMUNODEFICIENCY
     Dosage: 600 MG/KG; QM; IV
     Route: 042
     Dates: start: 20081010, end: 20090121
  2. MULTI-VITAMINS [Concomitant]
  3. BACTRIM [Concomitant]
  4. BENADRYL [Concomitant]
  5. HYDROCORTISONE [Concomitant]
  6. PULMICORT-100 [Concomitant]
  7. GANCICLOVIR [Concomitant]
  8. GAMUNEX [Suspect]
  9. GAMUNEX [Suspect]

REACTIONS (19)
  - ALANINE AMINOTRANSFERASE INCREASED [None]
  - ASCITES [None]
  - ASPARTATE AMINOTRANSFERASE INCREASED [None]
  - BONE MARROW TRANSPLANT [None]
  - CENTRAL LINE INFECTION [None]
  - CHRONIC OBSTRUCTIVE PULMONARY DISEASE [None]
  - CONDITION AGGRAVATED [None]
  - CYTOMEGALOVIRUS INFECTION [None]
  - DEEP VEIN THROMBOSIS [None]
  - ENTEROCOCCAL INFECTION [None]
  - HEPATITIS B ANTIBODY POSITIVE [None]
  - HEPATOSPLENOMEGALY [None]
  - HTLV-1 TEST POSITIVE [None]
  - HTLV-2 TEST POSITIVE [None]
  - HYPERTENSION [None]
  - HYPOGAMMAGLOBULINAEMIA [None]
  - INFECTION [None]
  - LEUKOCYTOSIS [None]
  - SLEEP APNOEA SYNDROME [None]
